FAERS Safety Report 17366771 (Version 1)
Quarter: 2020Q1

REPORT INFORMATION
  Report Type: Spontaneous
  Country: FR (occurrence: FR)
  Receive Date: 20200204
  Receipt Date: 20200204
  Transmission Date: 20200409
  Serious: Yes (Hospitalization)
  Sender: FDA-Public Use
  Company Number: FR-009507513-2002FRA000128

PATIENT
  Sex: Male

DRUGS (3)
  1. CISPLATIN. [Suspect]
     Active Substance: CISPLATIN
     Dosage: UNK
     Dates: start: 20200107
  2. ALIMTA [Suspect]
     Active Substance: PEMETREXED DISODIUM
     Dosage: UNK
     Dates: start: 20200107
  3. KEYTRUDA [Suspect]
     Active Substance: PEMBROLIZUMAB
     Indication: NON-SMALL CELL LUNG CANCER
     Dosage: UNK
     Dates: start: 20200107

REACTIONS (4)
  - General physical health deterioration [Unknown]
  - Neoplasm [Unknown]
  - Haematotoxicity [Unknown]
  - Weight decreased [Unknown]

NARRATIVE: CASE EVENT DATE: 202001
